FAERS Safety Report 10648836 (Version 1)
Quarter: 2014Q4

REPORT INFORMATION
  Report Type: Report from Study
  Country: US (occurrence: US)
  Receive Date: 20141212
  Receipt Date: 20141212
  Transmission Date: 20150529
  Serious: Yes (Hospitalization)
  Sender: FDA-Public Use
  Company Number: US-AMGEN-USASL2014096001

PATIENT
  Age: 57 Year
  Sex: Female

DRUGS (1)
  1. ENBREL [Suspect]
     Active Substance: ETANERCEPT
     Indication: RHEUMATOID ARTHRITIS
     Dosage: 50 MG, QWK
     Route: 065
     Dates: start: 20141115, end: 20141130

REACTIONS (6)
  - Road traffic accident [Unknown]
  - Wrist fracture [Not Recovered/Not Resolved]
  - Rib fracture [Not Recovered/Not Resolved]
  - Ankle fracture [Not Recovered/Not Resolved]
  - Aortic injury [Not Recovered/Not Resolved]
  - Head injury [Not Recovered/Not Resolved]

NARRATIVE: CASE EVENT DATE: 201412
